FAERS Safety Report 6618285-X (Version None)
Quarter: 2010Q1

REPORT INFORMATION
  Report Type: 
  Country: None (occurrence: None)
  Receive Date: 20100302
  Receipt Date: 20100215
  Transmission Date: 20100710
  Serious: Yes (Other)
  Sender: FDA-Public Use
  Company Number: JHP201000077

PATIENT
  Age: 39 Year
  Sex: Female

DRUGS (5)
  1. PITOCIN [Suspect]
     Indication: POSTPARTUM HAEMORRHAGE
     Dosage: 5 UNITS OVER 1 MINUTE, BOLUS, INTRAVENOUS
     Route: 042
  2. ANESTHESIA [Concomitant]
  3. EPHEDRINE (EPHEDRINE HYDROCHLORIDE) [Concomitant]
  4. RINGERS LACTATE (CALCIUM CHLORIDE ANHYDROUS, POTASSIUM CHLORIDE, SODIU [Concomitant]
  5. OXYGEN (OXYGEN) [Concomitant]

REACTIONS (2)
  - ELECTROCARDIOGRAM ST SEGMENT DEPRESSION [None]
  - HYPOTENSION [None]
